FAERS Safety Report 5344509-5 (Version None)
Quarter: 2007Q2

REPORT INFORMATION
  Report Type: 
  Country: None (occurrence: None)
  Receive Date: 20070604
  Receipt Date: 20070427
  Transmission Date: 20071010
  Serious: Yes (Death)
  Sender: FDA-Public Use
  Company Number: AU-PFIZER INC-2007039882

PATIENT
  Age: 30 Year
  Sex: Female

DRUGS (3)
  1. VORICONAZOLE [Suspect]
  2. ITRACONAZOLE [Suspect]
  3. AMPHOTERICIN B [Suspect]

REACTIONS (1)
  - DEATH [None]
